FAERS Safety Report 7574920-3 (Version None)
Quarter: 2011Q2

REPORT INFORMATION
  Report Type: 
  Country: None (occurrence: None)
  Receive Date: 20110627
  Receipt Date: 20110609
  Transmission Date: 20111010
  Serious: Yes (Hospitalization, Other)
  Sender: FDA-Public Use
  Company Number: DE-BAYER-2011-050832

PATIENT
  Age: 73 Year
  Sex: Female

DRUGS (1)
  1. VENTAVIS [Suspect]
     Indication: PULMONARY HYPERTENSION
     Dosage: 2.5 ?G, QID
     Route: 055
     Dates: start: 20100205

REACTIONS (3)
  - DIZZINESS [None]
  - ABDOMINAL PAIN UPPER [None]
  - NAUSEA [None]
